FAERS Safety Report 15709439 (Version 1)
Quarter: 2018Q4

REPORT INFORMATION
  Report Type: Spontaneous
  Country: GB (occurrence: GB)
  Receive Date: 20181211
  Receipt Date: 20181211
  Transmission Date: 20190205
  Serious: Yes (Other)
  Sender: FDA-Public Use
  Company Number: GB-PFIZER INC-2018500961

PATIENT
  Age: 36 Year

DRUGS (1)
  1. PREGABALIN. [Suspect]
     Active Substance: PREGABALIN
     Dosage: UNK
     Dates: start: 20180611

REACTIONS (2)
  - Respiratory failure [Unknown]
  - Somnolence [Unknown]

NARRATIVE: CASE EVENT DATE: 20180611
